FAERS Safety Report 8152596 (Version 2)
Quarter: 2014Q1

REPORT INFORMATION
  Report Type: Spontaneous
  Country: US (occurrence: US)
  Receive Date: 20110922
  Receipt Date: 20140122
  Transmission Date: 20141002
  Serious: No
  Sender: FDA-Public Use
  Company Number: US-ASTRAZENECA-2011SE39711

PATIENT
  Age: 67 Year
  Sex: Female
  Weight: 90.3 kg

DRUGS (32)
  1. SEROQUEL [Suspect]
     Indication: AFFECTIVE DISORDER
     Route: 048
     Dates: start: 2004, end: 20130112
  2. SEROQUEL [Suspect]
     Indication: SLEEP DISORDER
     Route: 048
     Dates: start: 2004, end: 20130112
  3. SEROQUEL [Suspect]
     Indication: BIPOLAR DISORDER
     Route: 048
     Dates: start: 2004, end: 20130112
  4. SEROQUEL [Suspect]
     Indication: AFFECTIVE DISORDER
     Route: 048
     Dates: end: 2008
  5. SEROQUEL [Suspect]
     Indication: SLEEP DISORDER
     Route: 048
     Dates: end: 2008
  6. SEROQUEL [Suspect]
     Indication: BIPOLAR DISORDER
     Route: 048
     Dates: end: 2008
  7. SEROQUEL [Suspect]
     Indication: AFFECTIVE DISORDER
     Route: 048
     Dates: start: 2008, end: 2011
  8. SEROQUEL [Suspect]
     Indication: SLEEP DISORDER
     Route: 048
     Dates: start: 2008, end: 2011
  9. SEROQUEL [Suspect]
     Indication: BIPOLAR DISORDER
     Route: 048
     Dates: start: 2008, end: 2011
  10. SEROQUEL [Suspect]
     Indication: AFFECTIVE DISORDER
     Route: 048
     Dates: start: 2011
  11. SEROQUEL [Suspect]
     Indication: SLEEP DISORDER
     Route: 048
     Dates: start: 2011
  12. SEROQUEL [Suspect]
     Indication: BIPOLAR DISORDER
     Route: 048
     Dates: start: 2011
  13. SEROQUEL [Suspect]
     Indication: AFFECTIVE DISORDER
     Route: 048
  14. SEROQUEL [Suspect]
     Indication: SLEEP DISORDER
     Route: 048
  15. SEROQUEL [Suspect]
     Indication: BIPOLAR DISORDER
     Route: 048
  16. SEROQUEL [Suspect]
     Indication: AFFECTIVE DISORDER
     Route: 048
     Dates: start: 201301, end: 201303
  17. SEROQUEL [Suspect]
     Indication: SLEEP DISORDER
     Route: 048
     Dates: start: 201301, end: 201303
  18. SEROQUEL [Suspect]
     Indication: BIPOLAR DISORDER
     Route: 048
     Dates: start: 201301, end: 201303
  19. SEROQUEL [Suspect]
     Indication: AFFECTIVE DISORDER
     Route: 048
     Dates: start: 201304, end: 20140112
  20. SEROQUEL [Suspect]
     Indication: SLEEP DISORDER
     Route: 048
     Dates: start: 201304, end: 20140112
  21. SEROQUEL [Suspect]
     Indication: BIPOLAR DISORDER
     Route: 048
     Dates: start: 201304, end: 20140112
  22. UNSPECIFIED INGREDIENTS [Suspect]
     Route: 065
  23. KLONOPIN [Concomitant]
     Indication: ANXIETY
     Route: 048
  24. KLONOPIN [Concomitant]
     Indication: SLEEP DISORDER
     Route: 048
  25. TOPOMAX [Concomitant]
     Indication: MANIA
     Route: 048
     Dates: start: 1999
  26. TOPOMAX [Concomitant]
     Indication: SLEEP DISORDER
     Route: 048
     Dates: start: 1999
  27. SYNTHROID [Concomitant]
     Indication: HYPOTHYROIDISM
     Dosage: 75MCG QAM
     Route: 048
  28. MIRALAX [Concomitant]
  29. TEGRETOL [Concomitant]
  30. ZOLPIDEM [Concomitant]
     Indication: SLEEP DISORDER
     Dosage: DAILY DOSE 10 MG
  31. PRAVASTATIN [Concomitant]
  32. BONE MEDICINE [Concomitant]
     Indication: OSTEOPOROSIS

REACTIONS (19)
  - Mania [Unknown]
  - Sleep disorder [Unknown]
  - Feeling jittery [Unknown]
  - Irritable bowel syndrome [Unknown]
  - Hypothyroidism [Not Recovered/Not Resolved]
  - Depressed mood [Not Recovered/Not Resolved]
  - Dysphonia [Not Recovered/Not Resolved]
  - Osteoarthritis [Not Recovered/Not Resolved]
  - Anxiety [Not Recovered/Not Resolved]
  - Nervousness [Unknown]
  - Speech disorder [Not Recovered/Not Resolved]
  - Tachyphrenia [Not Recovered/Not Resolved]
  - Nervousness [Unknown]
  - Insomnia [Unknown]
  - Constipation [Not Recovered/Not Resolved]
  - Off label use [Unknown]
  - Drug dose omission [Unknown]
  - Drug ineffective for unapproved indication [Unknown]
  - Wrong drug administered [Unknown]
